FAERS Safety Report 14735668 (Version 2)
Quarter: 2018Q2

REPORT INFORMATION
  Report Type: Spontaneous
  Country: US (occurrence: US)
  Receive Date: 20180409
  Receipt Date: 20180504
  Transmission Date: 20180711
  Serious: Yes (Death, Hospitalization, Other)
  Sender: FDA-Public Use
  Company Number: US-PFIZER INC-2018140232

PATIENT
  Age: 70 Year
  Sex: Male
  Weight: 108.8 kg

DRUGS (30)
  1. FAMVIR [Concomitant]
     Active Substance: FAMCICLOVIR
     Dosage: 500 MG, DAILY
     Route: 048
  2. TYLENOL [Concomitant]
     Active Substance: ACETAMINOPHEN
     Indication: PAIN
     Dosage: UNK, AS NEEDED (TAKE 1-2 TABLETS (325-650 MG TOTAL) BY MOUTH EVERY 6 (SIX) HOURS)
     Route: 048
  3. MIRALAX [Concomitant]
     Active Substance: POLYETHYLENE GLYCOL 3350
     Dosage: 17 G, AS NEEDED (DAILY)
     Route: 048
  4. LEUCOVORIN /00566701/ [Concomitant]
     Active Substance: LEUCOVORIN
     Dosage: 25 MG, EVERY 6 HRS (Q6H)
     Route: 042
  5. SENOKOT [Concomitant]
     Active Substance: SENNOSIDES
     Indication: CONSTIPATION
     Dosage: 17.2 MG, AS NEEDED (TAKE 2 TABLETS, 2 (TWO) TIMES A DAY)
     Route: 048
  6. PREDNISONE. [Concomitant]
     Active Substance: PREDNISONE
     Dosage: UNK
     Route: 037
  7. VINCRISTINE [Concomitant]
     Active Substance: VINCRISTINE
     Dosage: UNK
     Route: 037
  8. METHOTREXATE. [Concomitant]
     Active Substance: METHOTREXATE
     Dosage: UNK
     Route: 037
  9. MELATONIN [Concomitant]
     Active Substance: MELATONIN
     Dosage: 10 MG, AS NEEDED (NIGHTLY)
     Route: 048
  10. CEFEPIME [Concomitant]
     Active Substance: CEFEPIME HYDROCHLORIDE
     Dosage: UNK
  11. NEPHRO VITE RX [Concomitant]
     Active Substance: ASCORBIC ACID\BIOTIN\CALCIUM PANTOTHENATE\CYANOCOBALAMIN\FOLIC ACID\NIACINAMIDE\PYRIDOXINE HYDROCHLORIDE\RIBOFLAVIN\THIAMINE MONONITRATE
     Dosage: 1 DF, DAILY
     Route: 048
  12. FAMVIR [Concomitant]
     Active Substance: FAMCICLOVIR
     Dosage: 500 MG, 1X/DAY (QD)
  13. DIABETA [Concomitant]
     Active Substance: GLYBURIDE
     Dosage: 2.5 MG, 2X/DAY (WITH MEALS)
     Route: 048
  14. DESYREL [Concomitant]
     Active Substance: TRAZODONE HYDROCHLORIDE
     Dosage: 50 MG, AS NEEDED (NIGHTLY)
     Route: 048
  15. DOXORUBICIN [Concomitant]
     Active Substance: DOXORUBICIN
     Dosage: UNK
     Route: 037
  16. CAPOTEN [Concomitant]
     Active Substance: CAPTOPRIL
     Dosage: 12.5 MG, 3X/DAY
     Route: 048
  17. TRADJENTA [Concomitant]
     Active Substance: LINAGLIPTIN
     Dosage: 5 MG, DAILY
     Route: 048
  18. TASIGNA [Suspect]
     Active Substance: NILOTINIB
     Indication: ACUTE LYMPHOCYTIC LEUKAEMIA
     Dosage: 300 MG, 2X/DAY (2 CAPSULES Q12 HR)
     Route: 048
     Dates: start: 20171204, end: 20171226
  19. MEPRON [Concomitant]
     Active Substance: ATOVAQUONE
     Dosage: 750 MG, DAILY
     Route: 048
  20. FAMVIR [Concomitant]
     Active Substance: FAMCICLOVIR
     Dosage: 250 MG, DAILY
     Route: 048
  21. COMPAZINE [Concomitant]
     Active Substance: PROCHLORPERAZINE MALEATE
     Indication: NAUSEA
     Dosage: 5 MG, AS NEEDED, (EVERY 6 (SIX) HOURS)
     Route: 048
  22. TYLENOL [Concomitant]
     Active Substance: ACETAMINOPHEN
     Indication: PYREXIA
  23. PHOSLO [Concomitant]
     Active Substance: CALCIUM ACETATE
     Dosage: 1334 MG, 3X/DAY (TAKE 2 CAPSULES, 3 (THREE) TIMES A DAY WITH MEALS)
     Route: 048
  24. CYTARABINE. [Concomitant]
     Active Substance: CYTARABINE
     Dosage: UNK
     Route: 037
  25. BOSULIF [Suspect]
     Active Substance: BOSUTINIB MONOHYDRATE
     Dosage: 400-500 MG/DAY
  26. GLUCOPHAGE [Concomitant]
     Active Substance: METFORMIN HYDROCHLORIDE
     Dosage: 500 MG, 2X/DAY (WITH MEALS)
     Route: 048
  27. CRESTOR [Concomitant]
     Active Substance: ROSUVASTATIN CALCIUM
     Dosage: 40 MG, DAILY
     Route: 048
  28. COLACE [Concomitant]
     Active Substance: DOCUSATE SODIUM
     Dosage: 100 MG, DAILY
     Route: 048
  29. HUMULIN R [Concomitant]
     Active Substance: INSULIN HUMAN
     Dosage: UNK UNK, 4X/DAY (INJECT 0-6 UNITS UNDER THE SKIN EVERY 6 (SIX) HOURS)
     Route: 058
  30. VITAMIN D3 [Concomitant]
     Active Substance: CHOLECALCIFEROL
     Dosage: 1000 IU, DAILY
     Route: 048

REACTIONS (4)
  - Death [Fatal]
  - Acute kidney injury [Unknown]
  - Blood creatinine increased [Unknown]
  - Renal tubular necrosis [Unknown]

NARRATIVE: CASE EVENT DATE: 20180303
